APPROVED DRUG PRODUCT: POTASSIUM CHLORIDE 40MEQ IN SODIUM CHLORIDE 0.9% IN PLASTIC CONTAINER
Active Ingredient: POTASSIUM CHLORIDE; SODIUM CHLORIDE
Strength: 298MG/100ML;900MG/100ML
Dosage Form/Route: INJECTABLE;INJECTION
Application: N019686 | Product #002 | TE Code: AP
Applicant: OTSUKA ICU MEDICAL LLC
Approved: Oct 17, 1988 | RLD: No | RS: No | Type: RX